FAERS Safety Report 7963973-6 (Version None)
Quarter: 2011Q4

REPORT INFORMATION
  Report Type: 
  Country: None (occurrence: None)
  Receive Date: 20111208
  Receipt Date: 20111129
  Transmission Date: 20120403
  Serious: Yes (Hospitalization)
  Sender: FDA-Public Use
  Company Number: US-BAYER-201031817NA

PATIENT
  Age: 37 Year
  Sex: Female
  Weight: 95 kg

DRUGS (14)
  1. YASMIN [Suspect]
     Indication: DEPRESSION
  2. GUAIFENESIN/CODEINE [Concomitant]
  3. YASMIN [Suspect]
     Indication: ACNE
  4. AZITHROMYCIN [Concomitant]
  5. HYDROCHLOROTHIAZIDE [Concomitant]
  6. YASMIN [Suspect]
     Indication: ORAL CONTRACEPTION
     Dosage: UNK
     Route: 048
     Dates: start: 20070101, end: 20090101
  7. YASMIN [Suspect]
     Indication: PREMENSTRUAL SYNDROME
  8. DOXYCYCLINE [Concomitant]
     Indication: INFECTION
     Dosage: 100 MG, UNK
     Dates: start: 20090201
  9. FERROUS SULFATE TAB [Concomitant]
     Indication: ANAEMIA
     Dosage: 325 MG, UNK
     Dates: start: 20090201
  10. WOMEN+#8217;S VITAMINS [Concomitant]
  11. NSAID'S [Concomitant]
     Dosage: UNK
     Dates: start: 20050101, end: 20090101
  12. ZITHROMAX [Concomitant]
     Indication: INFECTION
     Dosage: 250 MG, UNK
     Dates: start: 20090201
  13. WELLBUTRIN [Concomitant]
     Indication: INFLAMMATION
     Dosage: UNK
     Dates: start: 20050101, end: 20090101
  14. ACETAMINOPHEN [Concomitant]
     Dosage: UNK UNK, PRN

REACTIONS (3)
  - DEEP VEIN THROMBOSIS [None]
  - ANXIETY [None]
  - DEPRESSION [None]
